FAERS Safety Report 4972001-6 (Version None)
Quarter: 2006Q2

REPORT INFORMATION
  Report Type: 
  Country: None (occurrence: None)
  Receive Date: 20060413
  Receipt Date: 20060404
  Transmission Date: 20061013
  Serious: Yes (Hospitalization, Disabling)
  Sender: FDA-Public Use
  Company Number: US-MERCK-0604USA00568

PATIENT
  Sex: Female

DRUGS (2)
  1. FOSAMAX [Suspect]
     Route: 048
     Dates: end: 20020501
  2. FOSAMAX [Suspect]
     Route: 048
     Dates: start: 20020502, end: 20060128

REACTIONS (6)
  - ANASTOMOTIC LEAK [None]
  - GASTROINTESTINAL DISORDER [None]
  - HYPOTENSION [None]
  - OESOPHAGEAL PERFORATION [None]
  - PNEUMONIA ASPIRATION [None]
  - VOMITING [None]
